FAERS Safety Report 25310986 (Version 1)
Quarter: 2025Q2

REPORT INFORMATION
  Report Type: Spontaneous
  Country: US (occurrence: None)
  Receive Date: 20250514
  Receipt Date: 20250514
  Transmission Date: 20250716
  Serious: No
  Sender: ENCUBE ETHICALS
  Company Number: US-Encube-001748

PATIENT
  Sex: Female

DRUGS (1)
  1. DICLOFENAC SODIUM [Suspect]
     Active Substance: DICLOFENAC SODIUM
     Indication: Product used for unknown indication
     Dates: start: 202503

REACTIONS (4)
  - Eye irritation [Unknown]
  - Off label use [Unknown]
  - Product use issue [Unknown]
  - Vision blurred [Unknown]

NARRATIVE: CASE EVENT DATE: 20250301
